FAERS Safety Report 18011181 (Version 4)
Quarter: 2020Q4

REPORT INFORMATION
  Report Type: Report from Study
  Country: CA (occurrence: CA)
  Receive Date: 20200712
  Receipt Date: 20201127
  Transmission Date: 20210113
  Serious: Yes (Hospitalization, Other)
  Sender: FDA-Public Use
  Company Number: NVSC2020CA193892

PATIENT
  Age: 74 Year
  Sex: Male

DRUGS (5)
  1. LOVENOX [Concomitant]
     Active Substance: ENOXAPARIN SODIUM
     Indication: PRODUCT USED FOR UNKNOWN INDICATION
     Dosage: UNK, QD
     Route: 058
  2. SANDOSTATIN LAR DEPOT [Suspect]
     Active Substance: OCTREOTIDE ACETATE
     Indication: FISTULA
     Dosage: 20 MG, QMO (4 WEEKS)
     Route: 030
     Dates: start: 20200506
  3. SANDOSTATIN LAR DEPOT [Suspect]
     Active Substance: OCTREOTIDE ACETATE
  4. SANDOSTATIN LAR DEPOT [Suspect]
     Active Substance: OCTREOTIDE ACETATE
  5. OCTREOTIDE. [Concomitant]
     Active Substance: OCTREOTIDE
     Indication: CARCINOID TUMOUR
     Dosage: 1 UG
     Route: 058
     Dates: start: 202002

REACTIONS (6)
  - Incisional hernia [Unknown]
  - Abdominal mass [Unknown]
  - Product use in unapproved indication [Unknown]
  - Terminal state [Unknown]
  - Blood urine present [Unknown]
  - Sciatica [Unknown]

NARRATIVE: CASE EVENT DATE: 2020
